FAERS Safety Report 9620193 (Version 1)
Quarter: 2013Q4

REPORT INFORMATION
  Report Type: Report from Study
  Country: BR (occurrence: BR)
  Receive Date: 20131014
  Receipt Date: 20131014
  Transmission Date: 20140711
  Serious: Yes (Hospitalization, Other)
  Sender: FDA-Public Use
  Company Number: PHHY2013BR114682

PATIENT
  Sex: Female
  Weight: 75 kg

DRUGS (6)
  1. EXJADE [Suspect]
     Indication: IRON OVERLOAD
     Dosage: UNK UKN, UNK
  2. HYDREA [Concomitant]
     Dosage: UNK UKN, UNK
  3. CINARIZINE [Concomitant]
     Dosage: UNK UKN, UNK
  4. RIVOTRIL [Concomitant]
     Dosage: UNK UKN, UNK
  5. AMYTRIL [Concomitant]
     Dosage: UNK UKN, UNK
  6. VERTIX//FLUNARIZINE DIHYDROCHLORIDE [Concomitant]
     Dosage: UNK UKN, UNK

REACTIONS (4)
  - Feeling abnormal [Not Recovered/Not Resolved]
  - Hepatitis C [Unknown]
  - Weight decreased [Unknown]
  - Abdominal distension [Recovering/Resolving]
